FAERS Safety Report 17210310 (Version 1)
Quarter: 2019Q4

REPORT INFORMATION
  Report Type: Spontaneous
  Country: US (occurrence: US)
  Receive Date: 20191227
  Receipt Date: 20191227
  Transmission Date: 20200122
  Serious: Yes (Other)
  Sender: FDA-Public Use
  Company Number: US-BRISTOL-MYERS SQUIBB COMPANY-BMS-2019-122655

PATIENT
  Sex: Female

DRUGS (2)
  1. OPDIVO [Suspect]
     Active Substance: NIVOLUMAB
     Indication: BASAL CELL CARCINOMA
     Dosage: 80 MILLIGRAM, Q2WK
     Route: 065
     Dates: start: 20190822
  2. YERVOY [Suspect]
     Active Substance: IPILIMUMAB
     Indication: BASAL CELL CARCINOMA
     Dosage: 246 MILLIGRAM, Q3WK
     Route: 065
     Dates: start: 20190822

REACTIONS (2)
  - Intentional product use issue [Unknown]
  - Malignant neoplasm progression [Unknown]
